FAERS Safety Report 25491363 (Version 2)
Quarter: 2025Q3

REPORT INFORMATION
  Report Type: Spontaneous
  Country: US (occurrence: US)
  Receive Date: 20250629
  Receipt Date: 20250718
  Transmission Date: 20251021
  Serious: Yes (Other)
  Sender: SANOFI AVENTIS
  Company Number: US-SA-2025SA182516

PATIENT
  Age: 27 Year
  Sex: Female

DRUGS (1)
  1. DUPIXENT [Suspect]
     Active Substance: DUPILUMAB
     Indication: Eosinophilic oesophagitis
     Dosage: 300 MG, QW
     Route: 058
     Dates: start: 20250303, end: 20250522

REACTIONS (9)
  - Abdominal infection [Recovered/Resolved]
  - Respiratory tract infection [Recovered/Resolved]
  - Dysphonia [Unknown]
  - Paranasal sinus discomfort [Unknown]
  - Oropharyngeal discomfort [Unknown]
  - Nasal discomfort [Unknown]
  - Sinusitis [Unknown]
  - Injection site bruising [Unknown]
  - Arthralgia [Unknown]

NARRATIVE: CASE EVENT DATE: 20250101
